FAERS Safety Report 12455723 (Version 2)
Quarter: 2016Q2

REPORT INFORMATION
  Report Type: Spontaneous
  Country: DE (occurrence: DE)
  Receive Date: 20160610
  Receipt Date: 20160620
  Transmission Date: 20160815
  Serious: Yes (Hospitalization)
  Sender: FDA-Public Use
  Company Number: DE-SA-2016SA103532

PATIENT
  Sex: Male

DRUGS (2)
  1. STILNOX [Suspect]
     Active Substance: ZOLPIDEM TARTRATE
     Route: 048
     Dates: end: 2016
  2. STILNOX [Suspect]
     Active Substance: ZOLPIDEM TARTRATE
     Dosage: 300-400 TABLETS/YEAR
     Route: 048

REACTIONS (15)
  - Memory impairment [Unknown]
  - Liver disorder [Unknown]
  - Coronary artery disease [Unknown]
  - Arteriosclerosis coronary artery [Unknown]
  - Narcissistic personality disorder [Unknown]
  - Chronic gastritis [Unknown]
  - Anxiety [Unknown]
  - Depression [Unknown]
  - Restlessness [Unknown]
  - Dependence [Unknown]
  - Overdose [Unknown]
  - Dementia [Unknown]
  - Sleep disorder [Unknown]
  - Hyperuricaemia [Unknown]
  - Dependent personality disorder [Unknown]
